FAERS Safety Report 5763002-9 (Version None)
Quarter: 2008Q2

REPORT INFORMATION
  Report Type: 
  Country: None (occurrence: None)
  Receive Date: 20080609
  Receipt Date: 20080528
  Transmission Date: 20081010
  Serious: Yes (Other)
  Sender: FDA-Public Use
  Company Number: US-PFIZER INC-2007013830

PATIENT
  Sex: Male
  Weight: 127 kg

DRUGS (16)
  1. LYRICA [Suspect]
     Indication: DIABETIC NEUROPATHY
  2. ALLOPURINOL [Concomitant]
     Indication: GOUT
  3. METFORMIN HCL [Concomitant]
     Indication: BLOOD GLUCOSE INCREASED
  4. AMITRIPTYLINE HCL [Concomitant]
     Indication: DEPRESSION
     Dates: start: 20040101
  5. CLONAZEPAM [Concomitant]
     Indication: ANXIETY
  6. VENLAFAXINE HCL [Concomitant]
  7. OMEPRAZOLE [Concomitant]
  8. TRAZODONE HCL [Concomitant]
  9. BUPROPION HCL [Concomitant]
  10. CITALOPRAM HYDROBROMIDE [Concomitant]
  11. CELEXA [Concomitant]
  12. DOXYCYCLINE [Concomitant]
  13. ZOCOR [Concomitant]
  14. HYDROCHLOROTHIAZIDE [Concomitant]
  15. LISINOPRIL [Concomitant]
  16. ALLEGRA [Concomitant]

REACTIONS (3)
  - COORDINATION ABNORMAL [None]
  - GAIT DISTURBANCE [None]
  - PHOBIA OF DRIVING [None]
